FAERS Safety Report 14327962 (Version 2)
Quarter: 2018Q1

REPORT INFORMATION
  Report Type: Spontaneous
  Country: JP (occurrence: JP)
  Receive Date: 20171227
  Receipt Date: 20180208
  Transmission Date: 20180509
  Serious: Yes (Other)
  Sender: FDA-Public Use
  Company Number: JP-BAYER-2017-183321

PATIENT
  Age: 61 Year
  Sex: Male
  Weight: 53.1 kg

DRUGS (8)
  1. STIVARGA [Suspect]
     Active Substance: REGORAFENIB
     Indication: HEPATIC CANCER
     Dosage: DAILY DOSE 80 MG
     Route: 048
     Dates: start: 20170901, end: 20170907
  2. STIVARGA [Suspect]
     Active Substance: REGORAFENIB
     Indication: HEPATIC CANCER
     Dosage: DAILY DOSE 120 MG
     Route: 048
     Dates: start: 20170817, end: 20170826
  3. STIVARGA [Suspect]
     Active Substance: REGORAFENIB
     Indication: HEPATIC CANCER
     Dosage: DAILY DOSE 80 MG
     Route: 048
     Dates: start: 20170927, end: 20171003
  4. AMLODIPINE [Concomitant]
     Active Substance: AMLODIPINE BESYLATE
     Dosage: DAILY DOSE 5 MG
  5. STIVARGA [Suspect]
     Active Substance: REGORAFENIB
     Indication: HEPATIC CANCER
     Dosage: DAILY DOSE 80 MG
     Route: 048
     Dates: start: 20170913, end: 20170919
  6. URSO [Concomitant]
     Active Substance: URSODIOL
     Indication: HEPATIC CANCER
     Dosage: DAILY DOSE 900 MG
     Route: 048
  7. TENOFOVIR DISOPROXIL FUMARATE. [Concomitant]
     Active Substance: TENOFOVIR DISOPROXIL FUMARATE
     Indication: HEPATIC CANCER
     Dosage: DAILY DOSE 25 MG
     Route: 048
  8. STIVARGA [Suspect]
     Active Substance: REGORAFENIB
     Indication: HEPATIC CANCER
     Dosage: DAILY DOSE 40 MG
     Route: 048
     Dates: start: 20170920, end: 20170926

REACTIONS (3)
  - Diplopia [Recovering/Resolving]
  - VIth nerve paralysis [Unknown]
  - Liver disorder [Recovering/Resolving]

NARRATIVE: CASE EVENT DATE: 20170826
